FAERS Safety Report 5598017-7 (Version None)
Quarter: 2008Q1

REPORT INFORMATION
  Report Type: 
  Country: None (occurrence: None)
  Receive Date: 20080122
  Receipt Date: 20080114
  Transmission Date: 20080703
  Serious: Yes (Hospitalization)
  Sender: FDA-Public Use
  Company Number: US-JNJFOC-20080103599

PATIENT
  Sex: Male
  Weight: 104.33 kg

DRUGS (2)
  1. RISPERDAL [Suspect]
     Dosage: AS NEEDED
     Route: 048
  2. RISPERDAL [Suspect]
     Indication: BIPOLAR DISORDER
     Route: 048

REACTIONS (3)
  - HYPERTENSION [None]
  - RENAL FAILURE [None]
  - THYROID FUNCTION TEST ABNORMAL [None]
